FAERS Safety Report 16876620 (Version 1)
Quarter: 2019Q4

REPORT INFORMATION
  Report Type: Spontaneous
  Country: CA (occurrence: CA)
  Receive Date: 20191002
  Receipt Date: 20191002
  Transmission Date: 20200122
  Serious: Yes (Death)
  Sender: FDA-Public Use
  Company Number: CA-ROCHE-2415526

PATIENT
  Age: 71 Year
  Sex: Male

DRUGS (12)
  1. LORAZEPAM. [Concomitant]
     Active Substance: LORAZEPAM
  2. AVASTIN [Suspect]
     Active Substance: BEVACIZUMAB
     Indication: MALIGNANT GLIOMA
     Route: 042
  3. AVODART [Concomitant]
     Active Substance: DUTASTERIDE
  4. DEXAMETHASONE. [Concomitant]
     Active Substance: DEXAMETHASONE
  5. GRANISETRON [Concomitant]
     Active Substance: GRANISETRON
  6. AVASTIN [Suspect]
     Active Substance: BEVACIZUMAB
     Indication: GLIOBLASTOMA
  7. PERINDOPRIL [Concomitant]
     Active Substance: PERINDOPRIL
  8. LEVETIRACETAM. [Concomitant]
     Active Substance: LEVETIRACETAM
  9. HYDROXOCOBALAMIN [Concomitant]
     Active Substance: HYDROXOCOBALAMIN
  10. FRAGMIN [Concomitant]
     Active Substance: DALTEPARIN SODIUM
  11. PROCHLORAZINE [Concomitant]
  12. RANITIDINE. [Concomitant]
     Active Substance: RANITIDINE

REACTIONS (1)
  - Bedridden [Fatal]
